FAERS Safety Report 7915736-5 (Version None)
Quarter: 2011Q4

REPORT INFORMATION
  Report Type: 
  Country: None (occurrence: None)
  Receive Date: 20111115
  Receipt Date: 20111102
  Transmission Date: 20120403
  Serious: Yes (Hospitalization)
  Sender: FDA-Public Use
  Company Number: TR-MYLANLABS-2011S1022989

PATIENT
  Age: 24 Year
  Sex: Female

DRUGS (5)
  1. CARBAMAZEPINE [Suspect]
  2. OXAPROZIN [Suspect]
     Indication: OVERDOSE
     Dosage: 30X 600MG TABLETS
     Route: 048
  3. CARBAMAZEPINE [Suspect]
  4. CARBAMAZEPINE [Suspect]
     Indication: OVERDOSE
     Dosage: 280X 200MG TABLETS
     Route: 048
  5. CARBAMAZEPINE [Suspect]
     Indication: EPILEPSY
     Dosage: 280X 200MG TABLETS
     Route: 048

REACTIONS (9)
  - VOMITING [None]
  - DIZZINESS [None]
  - SOMNOLENCE [None]
  - RENAL FAILURE ACUTE [None]
  - LARGE INTESTINAL OBSTRUCTION [None]
  - OVERDOSE [None]
  - NAUSEA [None]
  - ELECTROLYTE IMBALANCE [None]
  - SINUS TACHYCARDIA [None]
